FAERS Safety Report 17899379 (Version 1)
Quarter: 2020Q2

REPORT INFORMATION
  Report Type: Spontaneous
  Country: US (occurrence: US)
  Receive Date: 20200616
  Receipt Date: 20200616
  Transmission Date: 20200714
  Serious: No
  Sender: FDA-Public Use
  Company Number: US-ADVANZ PHARMA-202001000066

PATIENT

DRUGS (1)
  1. HYDROXYCHLOROQUINE [Suspect]
     Active Substance: HYDROXYCHLOROQUINE
     Dosage: UNK, BID TABLET 200MG TAB (2X PER DAY).
     Dates: start: 20191205, end: 20200103

REACTIONS (2)
  - Pruritus [Recovering/Resolving]
  - Tendon pain [Recovered/Resolved]

NARRATIVE: CASE EVENT DATE: 20191211
